FAERS Safety Report 8844453 (Version 1)
Quarter: 2012Q4

REPORT INFORMATION
  Report Type: 
  Country: MX (occurrence: MX)
  Receive Date: 20121017
  Receipt Date: 20121017
  Transmission Date: 20130627
  Serious: Yes (Death)
  Sender: FDA-Public Use
  Company Number: PHHY2012MX078950

PATIENT
  Age: 61 Year
  Sex: Female

DRUGS (1)
  1. EXFORGE [Suspect]
     Indication: HYPERTENSION
     Dosage: 1 DF (160/5 mg), QD
     Dates: start: 20120502

REACTIONS (3)
  - Death [Fatal]
  - Renal disorder [Not Recovered/Not Resolved]
  - Malaise [Not Recovered/Not Resolved]
